FAERS Safety Report 26212914 (Version 1)
Quarter: 2025Q4

REPORT INFORMATION
  Report Type: Spontaneous
  Country: US (occurrence: US)
  Receive Date: 20251230
  Receipt Date: 20251230
  Transmission Date: 20260117
  Serious: Yes (Hospitalization)
  Sender: DR REDDYS
  Company Number: None

PATIENT
  Age: 8 Decade
  Sex: Female

DRUGS (5)
  1. PREDNISONE [Suspect]
     Active Substance: PREDNISONE
     Indication: Pyoderma gangrenosum
     Dosage: OVER 4 MONTHS
  2. CYCLOSPORINE [Suspect]
     Active Substance: CYCLOSPORINE
     Indication: Pyoderma gangrenosum
     Dosage: OVER 4 MONTHS [EVERY NIGHT AT BEDTIME]
  3. DOXYCYCLINE [Concomitant]
     Active Substance: DOXYCYCLINE
     Indication: Pyoderma gangrenosum
  4. CLOBETASOL [Concomitant]
     Active Substance: CLOBETASOL
     Indication: Pyoderma gangrenosum
  5. METRONIDAZOLE [Concomitant]
     Active Substance: METRONIDAZOLE
     Indication: Pyoderma gangrenosum

REACTIONS (2)
  - Pseudomonas infection [Unknown]
  - Cytomegalovirus colitis [Unknown]
